FAERS Safety Report 4660449-9 (Version None)
Quarter: 2005Q2

REPORT INFORMATION
  Report Type: 
  Country: None (occurrence: None)
  Receive Date: 20050512
  Receipt Date: 20041203
  Transmission Date: 20051028
  Serious: Yes (Other)
  Sender: FDA-Public Use
  Company Number: GB-GLAXOSMITHKLINE-B0359553A

PATIENT
  Sex: Male

DRUGS (4)
  1. PAROXETINE HCL [Suspect]
     Route: 065
  2. OLANZAPINE [Concomitant]
     Dosage: 20MG AT NIGHT
     Route: 065
  3. PROCYCLIDINE HYDROCHLORIDE 2MG TAB [Concomitant]
     Dosage: 5MG TWICE PER DAY
     Route: 065
  4. ORPHENADRINE [Concomitant]
     Dosage: 50MG TWICE PER DAY
     Route: 065

REACTIONS (6)
  - AGGRESSION [None]
  - AGITATION [None]
  - ANGER [None]
  - CRYING [None]
  - HYPOMANIA [None]
  - IRRITABILITY [None]
